FAERS Safety Report 7201945-X (Version None)
Quarter: 2010Q4

REPORT INFORMATION
  Report Type: 
  Country: None (occurrence: None)
  Receive Date: 20101229
  Receipt Date: 20101220
  Transmission Date: 20110411
  Serious: Yes (Hospitalization, Other)
  Sender: FDA-Public Use
  Company Number: US-JNJFOC-20100900570

PATIENT
  Sex: Male

DRUGS (3)
  1. LEVAQUIN [Suspect]
     Indication: STAPHYLOCOCCAL INFECTION
     Route: 048
  2. CIPROFLOXACIN [Suspect]
     Indication: PROPHYLAXIS
     Route: 065
  3. PREDNISONE [Suspect]
     Indication: INFLAMMATION
     Route: 048

REACTIONS (6)
  - JOINT INJURY [None]
  - LIGAMENT RUPTURE [None]
  - MENISCUS LESION [None]
  - ROTATOR CUFF SYNDROME [None]
  - TENDON RUPTURE [None]
  - TENDONITIS [None]
